FAERS Safety Report 11814074 (Version 1)
Quarter: 2015Q4

REPORT INFORMATION
  Report Type: Spontaneous
  Country: RO (occurrence: RO)
  Receive Date: 20151209
  Receipt Date: 20151209
  Transmission Date: 20160305
  Serious: Yes (Death, Other)
  Sender: FDA-Public Use
  Company Number: PHHY2015RO158660

PATIENT
  Age: 71 Year
  Sex: Female

DRUGS (3)
  1. CYCLOPHOSPHAMIDE. [Suspect]
     Active Substance: CYCLOPHOSPHAMIDE
     Indication: CHRONIC LYMPHOCYTIC LEUKAEMIA
     Route: 065
  2. FLUDARABINE [Suspect]
     Active Substance: FLUDARABINE PHOSPHATE
     Indication: CHRONIC LYMPHOCYTIC LEUKAEMIA
     Route: 065
  3. ALEMTUZUMAB [Suspect]
     Active Substance: ALEMTUZUMAB
     Indication: CHRONIC LYMPHOCYTIC LEUKAEMIA
     Route: 065

REACTIONS (10)
  - Pneumocystis jirovecii pneumonia [Unknown]
  - Acute lymphocytic leukaemia [Unknown]
  - Sepsis [Fatal]
  - Hepatitis B [Unknown]
  - Chronic lymphocytic leukaemia recurrent [Unknown]
  - Pneumonia [Unknown]
  - Tracheobronchitis [Unknown]
  - Neutropenia [Unknown]
  - Multi-organ failure [Fatal]
  - Pancytopenia [Unknown]
